FAERS Safety Report 19667657 (Version 1)
Quarter: 2021Q3

REPORT INFORMATION
  Report Type: Spontaneous
  Country: IT (occurrence: IT)
  Receive Date: 20210806
  Receipt Date: 20210806
  Transmission Date: 20211014
  Serious: Yes (Hospitalization)
  Sender: FDA-Public Use
  Company Number: IT-ELI_LILLY_AND_COMPANY-IT202107010864

PATIENT
  Age: 92 Year
  Sex: Female

DRUGS (10)
  1. FORSTEO 250UG/ML [Suspect]
     Active Substance: TERIPARATIDE
     Indication: OSTEOPOROSIS
     Dosage: UNK UNK, UNKNOWN
     Route: 065
     Dates: start: 201907
  2. LASIX [Concomitant]
     Active Substance: FUROSEMIDE
     Indication: PRODUCT USED FOR UNKNOWN INDICATION
     Dosage: 2 DOSAGE FORM, UNKNOWN
     Route: 065
  3. PALEXIA [Concomitant]
     Active Substance: TAPENTADOL HYDROCHLORIDE
     Indication: PAIN
  4. LASIX [Concomitant]
     Active Substance: FUROSEMIDE
     Dosage: 3 DOSAGE FORM, UNKNOWN
     Route: 065
  5. PANTORC [Concomitant]
     Active Substance: PANTOPRAZOLE SODIUM
     Indication: PRODUCT USED FOR UNKNOWN INDICATION
  6. FORSTEO 250UG/ML [Suspect]
     Active Substance: TERIPARATIDE
     Dosage: UNK UNK, UNKNOWN
     Route: 065
  7. PRISMA [MESOGLYCAN] [Concomitant]
     Indication: PRODUCT USED FOR UNKNOWN INDICATION
     Dosage: UNK
  8. TORVAST [Concomitant]
     Active Substance: ATORVASTATIN
     Indication: PRODUCT USED FOR UNKNOWN INDICATION
  9. REVINTY ELLIPTA [Concomitant]
     Active Substance: FLUTICASONE FUROATE\VILANTEROL TRIFENATATE
     Indication: BRONCHITIS CHRONIC
  10. MUCOSOLVAN [Concomitant]
     Active Substance: AMBROXOL HYDROCHLORIDE
     Indication: PRODUCT USED FOR UNKNOWN INDICATION
     Dosage: UNK UNK, PRN
     Route: 065

REACTIONS (4)
  - Cardiac failure [Unknown]
  - Asthenia [Unknown]
  - Cardiac valve disease [Unknown]
  - Cystitis [Unknown]
